FAERS Safety Report 24258074 (Version 1)
Quarter: 2024Q3

REPORT INFORMATION
  Report Type: Report from Study
  Country: US (occurrence: US)
  Receive Date: 20240828
  Receipt Date: 20240828
  Transmission Date: 20241016
  Serious: Yes (Hospitalization)
  Sender: ROCHE
  Company Number: US-ROCHE-10000061088

PATIENT
  Age: 64 Year
  Sex: Male
  Weight: 45.81 kg

DRUGS (5)
  1. RITUXAN [Suspect]
     Active Substance: RITUXIMAB
     Indication: Multiple sclerosis
     Dosage: LAST DOSE ON -JAN-2024
     Route: 042
  2. OCREVUS [Suspect]
     Active Substance: OCRELIZUMAB
     Indication: Relapsing multiple sclerosis
     Route: 065
  3. ATORVASTATIN [Concomitant]
     Active Substance: ATORVASTATIN
     Dosage: LAST DOSE ON 18-AUG-2024
     Route: 048
     Dates: start: 20240516
  4. CARVEDILOL [Concomitant]
     Active Substance: CARVEDILOL
     Dosage: TABLET COMES AS 12.5 MG. PATIENT TAKES 2 TABLETS DAILY. LAST DOSE ON 18-AUG-2024
     Route: 048
     Dates: start: 20240516
  5. PRASUGREL [Concomitant]
     Active Substance: PRASUGREL
     Dosage: LAST DOSE ON 19-AUG-2024
     Route: 048
     Dates: start: 20240516

REACTIONS (10)
  - Myocardial infarction [Recovered/Resolved]
  - Arterial disorder [Recovered/Resolved]
  - T-lymphocyte count decreased [Not Recovered/Not Resolved]
  - Contusion [Not Recovered/Not Resolved]
  - COVID-19 [Recovering/Resolving]
  - Asthenia [Not Recovered/Not Resolved]
  - Headache [Not Recovered/Not Resolved]
  - Dizziness [Not Recovered/Not Resolved]
  - Off label use [Unknown]
  - B-lymphocyte count decreased [Not Recovered/Not Resolved]

NARRATIVE: CASE EVENT DATE: 20240101
